FAERS Safety Report 10673982 (Version 1)
Quarter: 2014Q4

REPORT INFORMATION
  Report Type: Report from Study
  Country: US (occurrence: US)
  Receive Date: 20141224
  Receipt Date: 20141224
  Transmission Date: 20150529
  Serious: Yes (Other)
  Sender: FDA-Public Use
  Company Number: US-SA-2014SA175481

PATIENT
  Age: 59 Year
  Sex: Female

DRUGS (2)
  1. COPAXONE [Concomitant]
     Active Substance: GLATIRAMER ACETATE
     Indication: MULTIPLE SCLEROSIS
     Route: 065
     Dates: start: 20090101, end: 20140501
  2. AUBAGIO [Suspect]
     Active Substance: TERIFLUNOMIDE
     Indication: MULTIPLE SCLEROSIS
     Route: 048
     Dates: start: 20130517

REACTIONS (7)
  - Head injury [Unknown]
  - Balance disorder [Unknown]
  - Fall [Unknown]
  - Wheelchair user [Unknown]
  - Anaemia [Unknown]
  - Weight bearing difficulty [Unknown]
  - Muscular weakness [Unknown]

NARRATIVE: CASE EVENT DATE: 201412
